FAERS Safety Report 10400447 (Version 1)
Quarter: 2014Q3

REPORT INFORMATION
  Report Type: Spontaneous
  Country: US (occurrence: US)
  Receive Date: 20140821
  Receipt Date: 20140821
  Transmission Date: 20150326
  Serious: No
  Sender: FDA-Public Use
  Company Number: US-ASTRAZENECA-2013SE79179

PATIENT
  Sex: Female

DRUGS (3)
  1. SYMBICORT [Suspect]
     Active Substance: BUDESONIDE\FORMOTEROL FUMARATE DIHYDRATE
     Dosage: 16/4.5 MCG, 2 PUFFS DAILY
     Route: 055
  2. SYMBICORT [Suspect]
     Active Substance: BUDESONIDE\FORMOTEROL FUMARATE DIHYDRATE
     Dosage: 16/4.5 MCG, 2 PUFFS BID
     Route: 055
  3. SYMBICORT [Suspect]
     Active Substance: BUDESONIDE\FORMOTEROL FUMARATE DIHYDRATE
     Dosage: 16/4.5 MCG, 2 PUFFS BID
     Route: 055

REACTIONS (5)
  - Off label use [Recovered/Resolved]
  - Chest discomfort [Recovered/Resolved]
  - Circumstance or information capable of leading to medication error [Not Recovered/Not Resolved]
  - Dyspnoea [Recovered/Resolved]
  - Off label use [Not Recovered/Not Resolved]
